FAERS Safety Report 6050734-0 (Version None)
Quarter: 2009Q1

REPORT INFORMATION
  Report Type: 
  Country: None (occurrence: None)
  Receive Date: 20090121
  Receipt Date: 20090121
  Transmission Date: 20090719
  Serious: Yes (Death)
  Sender: FDA-Public Use
  Company Number: None

PATIENT
  Age: 58 Year
  Sex: Male
  Weight: 113.3993 kg

DRUGS (5)
  1. ACTOS [Suspect]
     Indication: HYPERTENSION
     Dosage: 30 MG ONCE PER DAY PO
     Route: 048
     Dates: start: 20080728, end: 20081231
  2. METFORMIN HCL ER [Concomitant]
  3. GLIPIZIDE [Concomitant]
  4. RAMIPRIL [Concomitant]
  5. AMLODIPINE BESYLATE [Concomitant]

REACTIONS (3)
  - CARDIAC FAILURE CONGESTIVE [None]
  - FLUID RETENTION [None]
  - MYOCARDIAL INFARCTION [None]
